FAERS Safety Report 22338147 (Version 1)
Quarter: 2023Q2

REPORT INFORMATION
  Report Type: Report from Study
  Country: US (occurrence: None)
  Receive Date: 20230518
  Receipt Date: 20230518
  Transmission Date: 20230721
  Serious: Yes (Death)
  Sender: FDA-Public Use
  Company Number: 2023A114088

PATIENT
  Sex: Male
  Weight: 72.6 kg

DRUGS (23)
  1. CALQUENCE [Suspect]
     Active Substance: ACALABRUTINIB
     Indication: Follicular lymphoma
     Route: 048
  2. ADVIL [Concomitant]
     Active Substance: IBUPROFEN
  3. ALLOPURINOL [Concomitant]
     Active Substance: ALLOPURINOL
  4. ANTIVERT [Concomitant]
     Active Substance: MECLIZINE HYDROCHLORIDE
  5. BACTRIM [Concomitant]
     Active Substance: SULFAMETHOXAZOLE\TRIMETHOPRIM
  6. ENTECAVIR [Concomitant]
     Active Substance: ENTECAVIR
  7. FINASTERIDE [Concomitant]
     Active Substance: FINASTERIDE
  8. FLONASE [Concomitant]
     Active Substance: FLUTICASONE PROPIONATE
  9. GABAPENTIN [Concomitant]
     Active Substance: GABAPENTIN
  10. IMODIUM [Concomitant]
     Active Substance: LOPERAMIDE HYDROCHLORIDE
  11. MELOXICAM [Concomitant]
     Active Substance: MELOXICAM
  12. METOPROLOL [Concomitant]
     Active Substance: METOPROLOL
  13. OMEPRAZOLE [Concomitant]
     Active Substance: OMEPRAZOLE
  14. ONDANSETRON [Concomitant]
     Active Substance: ONDANSETRON
  15. PRAMIPEXOLE [Concomitant]
     Active Substance: PRAMIPEXOLE
  16. PROCHLORPERAZINE [Concomitant]
     Active Substance: PROCHLORPERAZINE
  17. SENNA S [Concomitant]
     Active Substance: DOCUSATE SODIUM\SENNA LEAF
  18. SINGULAIR [Concomitant]
     Active Substance: MONTELUKAST SODIUM
  19. SUDAFED [Concomitant]
     Active Substance: PSEUDOEPHEDRINE HYDROCHLORIDE
  20. TAMSULOSIN [Concomitant]
     Active Substance: TAMSULOSIN
  21. TRAMADOL [Concomitant]
     Active Substance: TRAMADOL
  22. XANAX [Concomitant]
     Active Substance: ALPRAZOLAM
  23. ZYRTEC [Concomitant]
     Active Substance: CETIRIZINE HYDROCHLORIDE

REACTIONS (1)
  - Death [Fatal]
